FAERS Safety Report 10549697 (Version 3)
Quarter: 2015Q2

REPORT INFORMATION
  Report Type: Spontaneous
  Country: US (occurrence: US)
  Receive Date: 20141028
  Receipt Date: 20150410
  Transmission Date: 20150821
  Serious: Yes (Hospitalization, Other)
  Sender: FDA-Public Use
  Company Number: US-PFIZER INC-2014296626

PATIENT
  Age: 73 Year
  Sex: Female

DRUGS (1)
  1. PREMPHASE [Suspect]
     Active Substance: ESTROGENS, CONJUGATED\MEDROXYPROGESTERONE ACETATE
     Indication: UTERINE PROLAPSE
     Dosage: 5 MG, 1X/DAY
     Dates: start: 1998, end: 201410

REACTIONS (2)
  - Transient ischaemic attack [Not Recovered/Not Resolved]
  - Off label use [Unknown]

NARRATIVE: CASE EVENT DATE: 1998
